FAERS Safety Report 8759781 (Version 2)
Quarter: 2013Q2

REPORT INFORMATION
  Report Type: Spontaneous
  Country: BR (occurrence: BR)
  Receive Date: 20120829
  Receipt Date: 20130603
  Transmission Date: 20140414
  Serious: Yes (Other)
  Sender: FDA-Public Use
  Company Number: BR-BRISTOL-MYERS SQUIBB COMPANY-16890345

PATIENT
  Age: 61 Year
  Sex: Female

DRUGS (4)
  1. PACLITAXEL [Suspect]
     Indication: BREAST CANCER
     Dosage: 7 APPLICATION STARTING 3RD CYCLE. INITIALLY DILUTED IN SODIUM CHLORIDE THEN DILUTED IN GLUCOSE
     Route: 042
     Dates: start: 201204
  2. AVASTIN [Suspect]
     Indication: BREAST CANCER
     Dosage: 7 APPLICATION STARTING 3RD CYCLE. INITIALLY DILUTED IN SODIUM CHLORIDE THEN DILUTED IN GLUCOSE
     Route: 042
     Dates: start: 201204
  3. ZOMETA [Suspect]
     Indication: BREAST CANCER
     Dosage: 7 APPLICATION STARTING 3RD CYCLE. INITIALLY DILUTED IN SODIUM CHLORIDE THEN DILUTED IN GLUCOSE
     Route: 042
     Dates: start: 201204
  4. SODIUM CHLORIDE [Suspect]

REACTIONS (6)
  - Hypertensive crisis [Recovered/Resolved]
  - Neurotoxicity [Unknown]
  - Pain in extremity [Recovering/Resolving]
  - Hypoaesthesia [Unknown]
  - Gastrointestinal tract irritation [Unknown]
  - Suspected counterfeit product [Unknown]
